FAERS Safety Report 9421728 (Version 2)
Quarter: 2013Q3

REPORT INFORMATION
  Report Type: Spontaneous
  Country: US (occurrence: US)
  Receive Date: 20130726
  Receipt Date: 20130826
  Transmission Date: 20140515
  Serious: Yes (Hospitalization)
  Sender: FDA-Public Use
  Company Number: US-AMGEN-USASP2013051552

PATIENT
  Age: 68 Year
  Sex: Female

DRUGS (3)
  1. ENBREL [Suspect]
     Indication: RHEUMATOID ARTHRITIS
     Dosage: UNK UNK, QWK
     Route: 065
     Dates: start: 20110601
  2. METHOTREXATE [Concomitant]
     Dosage: 15 UNK, UNK
  3. ORENCIA [Concomitant]
     Dosage: UNK
     Dates: start: 20120629, end: 20121223

REACTIONS (4)
  - Surgery [Recovered/Resolved]
  - Urticaria [Not Recovered/Not Resolved]
  - Bladder disorder [Recovered/Resolved]
  - Condition aggravated [Recovered/Resolved]
